FAERS Safety Report 22798552 (Version 10)
Quarter: 2025Q1

REPORT INFORMATION
  Report Type: Spontaneous
  Country: US (occurrence: US)
  Receive Date: 20230808
  Receipt Date: 20250114
  Transmission Date: 20250408
  Serious: Yes (Other)
  Sender: PFIZER
  Company Number: US-PFIZER INC-202300062519

PATIENT
  Age: 70 Year
  Sex: Male
  Weight: 117.48 kg

DRUGS (23)
  1. SOMAVERT [Suspect]
     Active Substance: PEGVISOMANT
     Indication: Acromegaly
     Dosage: 30 MG, DAILY
     Dates: start: 2011
  2. SOMAVERT [Suspect]
     Active Substance: PEGVISOMANT
     Indication: Carney complex
     Dosage: 30 MG, 1X/DAY (30MG BY INJECTION ONCE DAILY)
     Route: 058
     Dates: start: 20170616
  3. SOMAVERT [Suspect]
     Active Substance: PEGVISOMANT
     Indication: Gigantism
     Dosage: 30 MG, ALTERNATE DAY
     Dates: start: 20230201
  4. SOMAVERT [Suspect]
     Active Substance: PEGVISOMANT
     Dosage: 20 MG, 1X/DAY
  5. SOMAVERT [Suspect]
     Active Substance: PEGVISOMANT
     Dosage: 30MG DAILY, INJECTION
     Route: 058
  6. SOMAVERT [Suspect]
     Active Substance: PEGVISOMANT
     Dosage: 30 MG, DAILY
  7. ACIPHEX SPRINKLE [Concomitant]
     Active Substance: RABEPRAZOLE SODIUM
  8. AMITRIPTYLINE [Concomitant]
     Active Substance: AMITRIPTYLINE
  9. MOMETASONE FUROATE [Concomitant]
     Active Substance: MOMETASONE FUROATE
  10. FLOVENT HFA [Concomitant]
     Active Substance: FLUTICASONE PROPIONATE
  11. LINZESS [Concomitant]
     Active Substance: LINACLOTIDE
  12. HYDROCHLOROTHIAZIDE\LOSARTAN [Concomitant]
     Active Substance: HYDROCHLOROTHIAZIDE\LOSARTAN
  13. MECLIZINE [Concomitant]
     Active Substance: MECLIZINE HYDROCHLORIDE
  14. METFORMIN HYDROCHLORIDE [Concomitant]
     Active Substance: METFORMIN HYDROCHLORIDE
  15. METOPROLOL [Concomitant]
     Active Substance: METOPROLOL
  16. POTASSIUM [Concomitant]
     Active Substance: POTASSIUM
  17. ROSUVASTATIN CALCIUM [Concomitant]
     Active Substance: ROSUVASTATIN CALCIUM
  18. SPIRONOLACTONE [Concomitant]
     Active Substance: SPIRONOLACTONE
  19. TAMSULOSIN [Concomitant]
     Active Substance: TAMSULOSIN
  20. VITAMIN D NOS [Concomitant]
     Active Substance: CHOLECALCIFEROL\ERGOCALCIFEROL
  21. VITAMIN D3 [Concomitant]
     Active Substance: CHOLECALCIFEROL
  22. XOPENEX HFA [Concomitant]
     Active Substance: LEVALBUTEROL TARTRATE
  23. VITAMINS [Concomitant]
     Active Substance: VITAMINS

REACTIONS (4)
  - Heart valve operation [Not Recovered/Not Resolved]
  - Intentional product misuse [Unknown]
  - Product prescribing issue [Unknown]
  - Product dispensing error [Unknown]

NARRATIVE: CASE EVENT DATE: 20230201
